FAERS Safety Report 8294964-6 (Version None)
Quarter: 2012Q2

REPORT INFORMATION
  Report Type: 
  Country: None (occurrence: None)
  Receive Date: 20120418
  Receipt Date: 20120412
  Transmission Date: 20120825
  Serious: Yes (Death, Other)
  Sender: FDA-Public Use
  Company Number: FI-AMGEN-FINSP2012020618

PATIENT
  Age: 68 Year
  Sex: Female

DRUGS (5)
  1. RITUXIMAB [Concomitant]
     Dosage: UNK
  2. DOXORUBICIN HCL [Concomitant]
     Dosage: UNK
  3. VINCRISTINE [Concomitant]
     Dosage: UNK
  4. NEULASTA [Suspect]
     Indication: CHEMOTHERAPY
     Dosage: UNK
     Dates: start: 20120323
  5. CYCLOPHOSPHAMIDE [Concomitant]
     Dosage: UNK

REACTIONS (3)
  - PSYCHOTIC DISORDER [None]
  - MEDICATION ERROR [None]
  - DEATH [None]
